FAERS Safety Report 10149719 (Version 1)
Quarter: 2014Q2

REPORT INFORMATION
  Report Type: Spontaneous
  Country: IN (occurrence: IN)
  Receive Date: 20140502
  Receipt Date: 20140502
  Transmission Date: 20141212
  Serious: Yes (Death, Other)
  Sender: FDA-Public Use
  Company Number: PHHY2014IN053008

PATIENT
  Age: 18 Year
  Sex: Male
  Weight: 45 kg

DRUGS (1)
  1. CERTICAN [Suspect]
     Indication: PROPHYLAXIS AGAINST TRANSPLANT REJECTION
     Dosage: 0.5 MG TO 0.25 MG, DAILY
     Route: 048

REACTIONS (3)
  - Death [Fatal]
  - Kidney transplant rejection [Not Recovered/Not Resolved]
  - Blood creatine increased [Not Recovered/Not Resolved]
